FAERS Safety Report 5305169-2 (Version None)
Quarter: 2007Q2

REPORT INFORMATION
  Report Type: 
  Country: None (occurrence: None)
  Receive Date: 20070416
  Receipt Date: 20070406
  Transmission Date: 20071010
  Serious: Yes (Hospitalization)
  Sender: FDA-Public Use
  Company Number: 163-21880-07010240

PATIENT
  Age: 78 Year
  Sex: Female

DRUGS (13)
  1. REVLIMID [Suspect]
     Indication: CYTOGENETIC ANALYSIS ABNORMAL
     Dosage: SEE IMAGE
     Route: 048
     Dates: start: 20060411, end: 20061126
  2. REVLIMID [Suspect]
     Indication: MYELODYSPLASTIC SYNDROME
     Dosage: SEE IMAGE
     Route: 048
     Dates: start: 20060411, end: 20061126
  3. REVLIMID [Suspect]
     Indication: CYTOGENETIC ANALYSIS ABNORMAL
     Dosage: SEE IMAGE
     Route: 048
     Dates: start: 20070106, end: 20070119
  4. REVLIMID [Suspect]
     Indication: MYELODYSPLASTIC SYNDROME
     Dosage: SEE IMAGE
     Route: 048
     Dates: start: 20070106, end: 20070119
  5. FOSAMX (ALENDRONATE SODIUM) [Concomitant]
  6. OXYCODONE HCL [Concomitant]
  7. LIDODERM (LIDOCAINE) (POULTICE OR PATCH) [Concomitant]
  8. LEVOXYL [Concomitant]
  9. FAMOTIDINE [Concomitant]
  10. LASIX [Concomitant]
  11. FOLATE (FOLIC ACID) [Concomitant]
  12. SULFATE (FERROUS SULFATE) [Concomitant]
  13. CALCIUM (CALCIUM) [Concomitant]

REACTIONS (10)
  - BACK PAIN [None]
  - CONTUSION [None]
  - DUODENAL ULCER [None]
  - HAEMATEMESIS [None]
  - INTERNATIONAL NORMALISED RATIO INCREASED [None]
  - ODYNOPHAGIA [None]
  - PHARYNGOLARYNGEAL ABSCESS [None]
  - PLATELET COUNT DECREASED [None]
  - SPINAL COMPRESSION FRACTURE [None]
  - WHITE BLOOD CELL COUNT DECREASED [None]
